FAERS Safety Report 11531331 (Version 1)
Quarter: 2015Q3

REPORT INFORMATION
  Report Type: Spontaneous
  Country: US (occurrence: US)
  Receive Date: 20150921
  Receipt Date: 20150921
  Transmission Date: 20151125
  Serious: No
  Sender: FDA-Public Use
  Company Number: US-009507513-1509USA007609

PATIENT
  Sex: Female

DRUGS (1)
  1. NASONEX [Suspect]
     Active Substance: MOMETASONE FUROATE
     Dosage: 1 SQUIRT/ ONCE DAILY
     Route: 045

REACTIONS (4)
  - Nasopharyngitis [Unknown]
  - Hypersensitivity [Unknown]
  - Nasal congestion [Unknown]
  - Drug dose omission [Unknown]

NARRATIVE: CASE EVENT DATE: 2015
